FAERS Safety Report 25347763 (Version 2)
Quarter: 2025Q2

REPORT INFORMATION
  Report Type: Spontaneous
  Country: US (occurrence: US)
  Receive Date: 20250522
  Receipt Date: 20250629
  Transmission Date: 20250716
  Serious: No
  Sender: DR REDDYS
  Company Number: US-DRL-USA-USA/2025/04/006149

PATIENT
  Sex: Male

DRUGS (1)
  1. CLONIDINE [Suspect]
     Active Substance: CLONIDINE
     Indication: Blood pressure abnormal
     Route: 062

REACTIONS (3)
  - Product packaging issue [Unknown]
  - Product availability issue [Unknown]
  - Product dose omission issue [Unknown]
